FAERS Safety Report 14923628 (Version 1)
Quarter: 2018Q2

REPORT INFORMATION
  Report Type: Spontaneous
  Country: BE (occurrence: BE)
  Receive Date: 20180522
  Receipt Date: 20180522
  Transmission Date: 20180711
  Serious: Yes (Death, Hospitalization)
  Sender: FDA-Public Use
  Company Number: BE-009507513-1805BEL007697

PATIENT
  Age: 81 Year
  Sex: Female

DRUGS (12)
  1. OMEPRAZOLE. [Interacting]
     Active Substance: OMEPRAZOLE
     Dosage: CHRONIC TREATMENT
     Route: 048
  2. CORDARONE [Interacting]
     Active Substance: AMIODARONE HYDROCHLORIDE
     Dosage: CHRONIC TREATMENT
     Route: 048
  3. TENORMIN [Concomitant]
     Active Substance: ATENOLOL
     Dosage: 32.5 MG; CHRONIC TREATMENT (0.5 TABLET IN THE MORNING = 1 TABLET IN THE EVENING)
     Route: 048
  4. SERTRALINE HYDROCHLORIDE. [Interacting]
     Active Substance: SERTRALINE HYDROCHLORIDE
     Indication: DEPRESSION
     Dosage: CHRONIC TREATMENT TAPERING DOSE TO BE REPLACED BY MIRTAZAPINE
     Route: 048
  5. MOXONIDINE [Concomitant]
     Active Substance: MOXONIDINE
     Dosage: CHRONIC TREATMENT
     Route: 048
  6. MIRTAZAPINE. [Suspect]
     Active Substance: MIRTAZAPINE
     Indication: DEPRESSION
     Dosage: I DO NOT KNOW IF THE TREATMENT WAS ALREADY STARTED WHEN THE EFFECTS APPEARED
     Route: 048
  7. HYDRALAZINE [Concomitant]
     Active Substance: HYDRALAZINE HYDROCHLORIDE
     Dosage: CHRONIC TREATMENT
     Route: 048
  8. ERYTHROMYCIN. [Interacting]
     Active Substance: ERYTHROMYCIN
     Dosage: 1500 MG, QD
     Route: 048
     Dates: start: 20180102, end: 20180109
  9. LASIX [Interacting]
     Active Substance: FUROSEMIDE
     Dosage: CHRONIC TREATMENT
     Route: 048
  10. ASAFLOW [Concomitant]
     Active Substance: ASPIRIN
     Dosage: CHRONIC TREATMENT
     Route: 048
  11. ALLOPURINOL. [Concomitant]
     Active Substance: ALLOPURINOL
     Dosage: CHRONIC TREATMENT
     Route: 048
  12. MIRTAZAPINE. [Interacting]
     Active Substance: MIRTAZAPINE
     Indication: INSOMNIA

REACTIONS (3)
  - Drug interaction [Fatal]
  - Electrocardiogram QT prolonged [Fatal]
  - Death [Fatal]
